FAERS Safety Report 14279289 (Version 2)
Quarter: 2017Q4

REPORT INFORMATION
  Report Type: Spontaneous
  Country: US (occurrence: US)
  Receive Date: 20171213
  Receipt Date: 20171220
  Transmission Date: 20180321
  Serious: Yes (Death, Other)
  Sender: FDA-Public Use
  Company Number: US-BEH-2017085901

PATIENT
  Age: 49 Year
  Sex: Male
  Weight: 58.5 kg

DRUGS (12)
  1. LACTOSE [Concomitant]
     Active Substance: LACTOSE
  2. OXYCODONE [Concomitant]
     Active Substance: OXYCODONE
  3. HIZENTRA [Suspect]
     Active Substance: HUMAN IMMUNOGLOBULIN G
     Dosage: UNK
     Route: 058
  4. OXYCONTIN [Concomitant]
     Active Substance: OXYCODONE HYDROCHLORIDE
  5. VITAMIN C [Concomitant]
     Active Substance: ASCORBIC ACID
  6. CEFTAZIDIME                        /00559702/ [Concomitant]
  7. LYRICA [Concomitant]
     Active Substance: PREGABALIN
  8. PROTONIX [Concomitant]
     Active Substance: PANTOPRAZOLE SODIUM
  9. HIZENTRA [Suspect]
     Active Substance: HUMAN IMMUNOGLOBULIN G
     Indication: IMMUNODEFICIENCY
     Dosage: 12 G, UNK
     Route: 058
     Dates: start: 20101228
  10. HIZENTRA [Suspect]
     Active Substance: HUMAN IMMUNOGLOBULIN G
     Indication: IMMUNODEFICIENCY COMMON VARIABLE
     Dosage: UNK
     Route: 058
  11. CIPROFLOXACIN. [Concomitant]
     Active Substance: CIPROFLOXACIN
  12. OXYGEN. [Concomitant]
     Active Substance: OXYGEN

REACTIONS (2)
  - Death [Fatal]
  - Neoplasm malignant [Fatal]

NARRATIVE: CASE EVENT DATE: 20171212
